FAERS Safety Report 16028488 (Version 3)
Quarter: 2019Q1

REPORT INFORMATION
  Report Type: Report from Study
  Country: GR (occurrence: GR)
  Receive Date: 20190304
  Receipt Date: 20190313
  Transmission Date: 20190418
  Serious: Yes (Hospitalization)
  Sender: FDA-Public Use
  Company Number: GR-ROCHE-2244540

PATIENT
  Age: 67 Year
  Sex: Male
  Weight: 74 kg

DRUGS (15)
  1. BLOCATENS [Concomitant]
     Route: 048
     Dates: start: 2016
  2. PREZOLON [Concomitant]
     Active Substance: PREDNISOLONE
     Route: 048
     Dates: start: 20170301
  3. EMCONCOR [Concomitant]
     Active Substance: BISOPROLOL FUMARATE
     Route: 048
     Dates: start: 2016
  4. PIRFENIDONE. [Suspect]
     Active Substance: PIRFENIDONE
     Dosage: DATE OF MOST RECENT DOSE OF OPEN LABEL PIRFENIDONE PRIOR TO SAE: 19/JAN/2019 DOSE OF LAST DOSE PRIOR
     Route: 048
  5. MYFETIL [Concomitant]
     Route: 048
     Dates: start: 20180523, end: 20180702
  6. MYFETIL [Concomitant]
     Route: 048
     Dates: start: 20180703
  7. ALFURAL [Concomitant]
     Route: 048
     Dates: start: 2013
  8. GLUCOPHAGE [Concomitant]
     Active Substance: METFORMIN HYDROCHLORIDE
     Indication: DIABETES MELLITUS
     Route: 048
     Dates: start: 20170301
  9. IDEOS [Concomitant]
     Active Substance: CALCIUM CARBONATE\CHOLECALCIFEROL
     Route: 048
     Dates: start: 20170301
  10. FOSAMAX [Concomitant]
     Active Substance: ALENDRONATE SODIUM
     Route: 048
     Dates: start: 20170301
  11. GLIMBAX (PRULIFLOXACIN) [Concomitant]
     Indication: PROSTATITIS
     Route: 048
     Dates: start: 20180523, end: 20180601
  12. SALOSPIR [Concomitant]
     Active Substance: ASPIRIN
     Route: 048
     Dates: start: 2016
  13. MYFETIL [Concomitant]
     Route: 048
     Dates: start: 20171101, end: 20180522
  14. CLOVELEN [Concomitant]
     Active Substance: CLOPIDOGREL BISULFATE
     Route: 048
     Dates: start: 2016
  15. PIRFENIDONE. [Suspect]
     Active Substance: PIRFENIDONE
     Indication: INTERSTITIAL LUNG DISEASE
     Dosage: 24/DEC/2018: DATE OF MOST RECENT DOSE OF OPEN LABEL PIRFENIDONE PRIOR TO SAE ONSET?LAST DOSE (2403 M
     Route: 048
     Dates: start: 20180212

REACTIONS (2)
  - Ileus [Recovered/Resolved]
  - Ileus [Recovered/Resolved]

NARRATIVE: CASE EVENT DATE: 20181225
